FAERS Safety Report 8304061-9 (Version None)
Quarter: 2012Q2

REPORT INFORMATION
  Report Type: 
  Country: None (occurrence: None)
  Receive Date: 20120423
  Receipt Date: 20120409
  Transmission Date: 20120825
  Serious: No
  Sender: FDA-Public Use
  Company Number: US-ROXANE LABORATORIES, INC.-2012-RO-01015RO

PATIENT
  Age: 66 Year
  Sex: Female

DRUGS (1)
  1. PREDNISONE TAB [Suspect]

REACTIONS (3)
  - INCREASED TENDENCY TO BRUISE [None]
  - VITAMIN D DECREASED [None]
  - UPPER LIMB FRACTURE [None]
